FAERS Safety Report 6904469-X (Version None)
Quarter: 2010Q3

REPORT INFORMATION
  Report Type: 
  Country: None (occurrence: None)
  Receive Date: 20100804
  Receipt Date: 20090526
  Transmission Date: 20110219
  Serious: No
  Sender: FDA-Public Use
  Company Number: US-PFIZER INC-2009190943

PATIENT

DRUGS (1)
  1. LYRICA [Suspect]
     Indication: FIBROMYALGIA
     Dosage: 50 MG, 3X/DAY

REACTIONS (4)
  - AGITATION [None]
  - DISTURBANCE IN ATTENTION [None]
  - INSOMNIA [None]
  - MOVEMENT DISORDER [None]
